FAERS Safety Report 11105162 (Version 24)
Quarter: 2018Q2

REPORT INFORMATION
  Report Type: Report from Study
  Country: CA (occurrence: CA)
  Receive Date: 20150511
  Receipt Date: 20180620
  Transmission Date: 20180711
  Serious: Yes (Other)
  Sender: FDA-Public Use
  Company Number: PHHY2011CA89391

PATIENT
  Age: 82 Year
  Sex: Male

DRUGS (4)
  1. AFINITOR [Suspect]
     Active Substance: EVEROLIMUS
     Indication: NEUROENDOCRINE TUMOUR
     Dosage: 10 MG, QD
     Route: 048
     Dates: start: 20110328, end: 20110610
  2. SANDOSTATIN LAR DEPOT [Suspect]
     Active Substance: OCTREOTIDE ACETATE
     Indication: NEUROENDOCRINE TUMOUR
     Dosage: 60 MG, (QMO) EVERY 4 WEEKS
     Route: 030
     Dates: start: 20101029
  3. SANDOSTATIN [Suspect]
     Active Substance: OCTREOTIDE ACETATE
     Indication: NEUROENDOCRINE TUMOUR
     Dosage: 100 UG, ONCE/SINGLE (TEST DOSE)
     Route: 058
     Dates: start: 20101020, end: 20101020
  4. AFINITOR [Suspect]
     Active Substance: EVEROLIMUS
     Dosage: 5 MG, QD
     Route: 048
     Dates: start: 20141108, end: 20150215

REACTIONS (20)
  - Hepatic neoplasm [Not Recovered/Not Resolved]
  - Injection site pain [Unknown]
  - Weight decreased [Unknown]
  - Productive cough [Unknown]
  - Blood pressure increased [Unknown]
  - Decreased appetite [Unknown]
  - Constipation [Unknown]
  - Injection site bruising [Unknown]
  - Noninfective gingivitis [Unknown]
  - Oral pain [Recovering/Resolving]
  - Fatigue [Unknown]
  - Malignant neoplasm progression [Unknown]
  - Lethargy [Unknown]
  - Blood pressure systolic increased [Unknown]
  - Anorectal discomfort [Not Recovered/Not Resolved]
  - Gingivitis [Unknown]
  - Pancreatic neoplasm [Not Recovered/Not Resolved]
  - Cataract [Recovering/Resolving]
  - Dry mouth [Not Recovered/Not Resolved]
  - Rhinorrhoea [Unknown]

NARRATIVE: CASE EVENT DATE: 201411
